FAERS Safety Report 10400184 (Version 2)
Quarter: 2014Q3

REPORT INFORMATION
  Report Type: Not Available
  Country: US (occurrence: US)
  Receive Date: 20140821
  Receipt Date: 20140923
  Transmission Date: 20150326
  Serious: Yes (Death, Hospitalization)
  Sender: FDA-Public Use
  Company Number: US-ONYX-2014-1822

PATIENT
  Age: 66 Year

DRUGS (1)
  1. KYPROLIS [Suspect]
     Active Substance: CARFILZOMIB
     Indication: PLASMA CELL MYELOMA
     Route: 042
     Dates: start: 20130120, end: 20130130

REACTIONS (3)
  - Pneumonia [Unknown]
  - Acute respiratory failure [Fatal]
  - Mental status changes [Unknown]

NARRATIVE: CASE EVENT DATE: 20130203
